FAERS Safety Report 7620917-4 (Version None)
Quarter: 2011Q3

REPORT INFORMATION
  Report Type: 
  Country: None (occurrence: None)
  Receive Date: 20110719
  Receipt Date: 20040624
  Transmission Date: 20111222
  Serious: Yes (Hospitalization)
  Sender: FDA-Public Use
  Company Number: PHEH2004US06935

PATIENT
  Sex: Male

DRUGS (5)
  1. LOPRESSOR [Suspect]
     Indication: HYPERTENSION
     Route: 048
     Dates: start: 19790101, end: 20040601
  2. PROPAFENONE HYDROCHLORIDE [Concomitant]
  3. NICOTINE POLACRILEX [Suspect]
     Dosage: 4 MG, QD
     Route: 002
     Dates: start: 20040401
  4. ACETYLSALICYLIC ACID SRT [Suspect]
     Dosage: 81 MG, QD
     Route: 048
     Dates: start: 20010101, end: 20040601
  5. DIGOXIN [Concomitant]

REACTIONS (1)
  - PNEUMONIA [None]
